FAERS Safety Report 6370857-6 (Version None)
Quarter: 2009Q3

REPORT INFORMATION
  Report Type: 
  Country: None (occurrence: None)
  Receive Date: 20090921
  Receipt Date: 20090921
  Transmission Date: 20100115
  Serious: Yes (Death, Other)
  Sender: FDA-Public Use
  Company Number: None

PATIENT
  Sex: Male
  Weight: 108.8633 kg

DRUGS (2)
  1. LISINOPRIL AND HYDROCHLOROTHIAZIDE [Suspect]
     Indication: HYPERTENSION
     Dosage: LISINOPRIL 1 QD 20-12.5 MG ORAL
     Route: 048
     Dates: start: 20090126, end: 20090211
  2. BENICAR HCT [Suspect]
     Indication: HYPERTENSION
     Dosage: BENICAR HCT 1 QD 40-25MG ORAL
     Route: 048
     Dates: start: 20090211, end: 20090603

REACTIONS (4)
  - ADVERSE DRUG REACTION [None]
  - ECONOMIC PROBLEM [None]
  - LOSS OF EMPLOYMENT [None]
  - PRODUCT SUBSTITUTION ISSUE [None]
